FAERS Safety Report 6656009-0 (Version None)
Quarter: 2010Q1

REPORT INFORMATION
  Report Type: 
  Country: None (occurrence: None)
  Receive Date: 20100329
  Receipt Date: 20100318
  Transmission Date: 20100710
  Serious: Yes (Hospitalization)
  Sender: FDA-Public Use
  Company Number: CA-PFIZER INC-2008095243

PATIENT
  Age: 48 Year
  Sex: Male
  Weight: 73 kg

DRUGS (7)
  1. MARAVIROC [Suspect]
     Indication: HIV INFECTION
     Dosage: 300 MG (150 MG, 2X/DAY), ALTERNATE DAY
     Route: 048
     Dates: start: 20070905
  2. XANAX [Concomitant]
     Route: 048
     Dates: start: 20000125
  3. PANTOPRAZOLE [Concomitant]
     Route: 048
     Dates: start: 20081105
  4. ABACAVIR/LAMIVUDINE [Concomitant]
     Route: 048
     Dates: start: 20080108
  5. KALETRA [Concomitant]
     Route: 048
     Dates: start: 20050517
  6. IMODIUM A-D [Concomitant]
     Dosage: UNK
     Route: 048
     Dates: start: 20050517
  7. LOPERAMIDE HYDROCHLORIDE [Concomitant]
     Dosage: UNK
     Dates: start: 20050517

REACTIONS (1)
  - MYOCARDIAL INFARCTION [None]
